FAERS Safety Report 7141925-6 (Version None)
Quarter: 2010Q4

REPORT INFORMATION
  Report Type: 
  Country: None (occurrence: None)
  Receive Date: 20101207
  Receipt Date: 20101122
  Transmission Date: 20110411
  Serious: Yes (Other)
  Sender: FDA-Public Use
  Company Number: B0679506A

PATIENT
  Sex: Male
  Weight: 100 kg

DRUGS (1)
  1. NIQUITIN CQ 4MG LOZENGE [Suspect]
     Dosage: 4MG PER DAY
     Route: 002
     Dates: start: 20100802, end: 20101010

REACTIONS (3)
  - BLOOD CHOLESTEROL INCREASED [None]
  - BLOOD TRIGLYCERIDES INCREASED [None]
  - TRANSAMINASES INCREASED [None]
